FAERS Safety Report 5292059-7 (Version None)
Quarter: 2007Q2

REPORT INFORMATION
  Report Type: 
  Country: None (occurrence: None)
  Receive Date: 20070403
  Receipt Date: 20070326
  Transmission Date: 20071010
  Serious: Yes (Life-Threatening)
  Sender: FDA-Public Use
  Company Number: 2007RR-06569

PATIENT
  Age: 17 Year
  Sex: Male

DRUGS (2)
  1. IBUPROFEN [Suspect]
     Indication: SWELLING FACE
     Dosage: 400 MG, ORAL
     Route: 048
     Dates: start: 20070220, end: 20070307
  2. HEDEX [Concomitant]

REACTIONS (1)
  - DUODENAL ULCER PERFORATION [None]
